FAERS Safety Report 10792294 (Version 3)
Quarter: 2015Q1

REPORT INFORMATION
  Report Type: Spontaneous
  Country: US (occurrence: US)
  Receive Date: 20150213
  Receipt Date: 20150330
  Transmission Date: 20150721
  Serious: Yes (Other)
  Sender: FDA-Public Use
  Company Number: US-SA-2015SA016773

PATIENT
  Age: 84 Year
  Sex: Female
  Weight: 104.2 kg

DRUGS (11)
  1. NORCO [Concomitant]
     Active Substance: ACETAMINOPHEN\HYDROCODONE BITARTRATE
     Route: 048
  2. ALLOPURINOL. [Concomitant]
     Active Substance: ALLOPURINOL
     Indication: GOUT
  3. LOVENOX [Suspect]
     Active Substance: ENOXAPARIN SODIUM
     Indication: KNEE ARTHROPLASTY
     Route: 058
     Dates: start: 20150129, end: 20150213
  4. FUROSEMIDE. [Concomitant]
     Active Substance: FUROSEMIDE
     Indication: OEDEMA
  5. LISINOPRIL. [Concomitant]
     Active Substance: LISINOPRIL
     Indication: BLOOD PRESSURE
  6. VITAMIN D3 [Concomitant]
     Active Substance: CHOLECALCIFEROL
     Indication: SUPPLEMENTATION THERAPY
  7. DILTIAZEM [Concomitant]
     Active Substance: DILTIAZEM
  8. PRAVASTATIN [Concomitant]
     Active Substance: PRAVASTATIN\PRAVASTATIN SODIUM
     Indication: BLOOD CHOLESTEROL
  9. LOVENOX [Suspect]
     Active Substance: ENOXAPARIN SODIUM
     Indication: THROMBOSIS PROPHYLAXIS
     Route: 058
     Dates: start: 20150129, end: 20150213
  10. NASONEX [Concomitant]
     Active Substance: MOMETASONE FUROATE
     Indication: HYPERSENSITIVITY
     Dosage: DAILY DOSE: 2 SPRAY
  11. METOPROLOL [Concomitant]
     Active Substance: METOPROLOL

REACTIONS (3)
  - Cardiac disorder [Not Recovered/Not Resolved]
  - Contusion [Recovered/Resolved]
  - Pain [Recovered/Resolved]

NARRATIVE: CASE EVENT DATE: 2015
